FAERS Safety Report 6652740-1 (Version None)
Quarter: 2010Q1

REPORT INFORMATION
  Report Type: 
  Country: None (occurrence: None)
  Receive Date: 20100326
  Receipt Date: 20100311
  Transmission Date: 20100710
  Serious: Yes (Hospitalization, Disabling, Other)
  Sender: FDA-Public Use
  Company Number: US-ELI_LILLY_AND_COMPANY-US201003005112

PATIENT
  Sex: Male

DRUGS (7)
  1. FORTEO [Suspect]
     Indication: OSTEOPOROSIS
     Dosage: 20 UG, DAILY (1/D)
     Dates: start: 20090201
  2. BABY ASPIRIN [Concomitant]
  3. PLAVIX [Concomitant]
  4. COREG [Concomitant]
  5. ANALGESICS [Concomitant]
  6. VITAMINS [Concomitant]
  7. CALCIUM W/VITAMIN D NOS [Concomitant]

REACTIONS (10)
  - ARTHRALGIA [None]
  - ASTHENIA [None]
  - BACK PAIN [None]
  - BLOOD CHOLESTEROL INCREASED [None]
  - BLOOD PRESSURE FLUCTUATION [None]
  - CEREBROVASCULAR ACCIDENT [None]
  - FALL [None]
  - HYPOAESTHESIA [None]
  - PARALYSIS [None]
  - THROMBOSIS [None]
